FAERS Safety Report 6104044-3 (Version None)
Quarter: 2009Q1

REPORT INFORMATION
  Report Type: 
  Country: None (occurrence: None)
  Receive Date: 20090305
  Receipt Date: 20090305
  Transmission Date: 20090719
  Serious: Yes (Hospitalization)
  Sender: FDA-Public Use
  Company Number: AT-PFIZER INC-2009175357

PATIENT

DRUGS (7)
  1. ARTHROTEC [Suspect]
     Route: 048
  2. ENALAPRIL [Suspect]
  3. FORADIL [Concomitant]
  4. MIFLONIDE [Concomitant]
  5. RESPICUR [Concomitant]
  6. ASPIRIN [Concomitant]
     Route: 048
  7. ISOSORBIDE MONONITRATE [Concomitant]

REACTIONS (2)
  - RENAL FAILURE [None]
  - RHABDOMYOLYSIS [None]
